FAERS Safety Report 19256061 (Version 1)
Quarter: 2021Q2

REPORT INFORMATION
  Report Type: Spontaneous
  Country: US (occurrence: US)
  Receive Date: 20210513
  Receipt Date: 20210513
  Transmission Date: 20210717
  Serious: No
  Sender: FDA-Public Use
  Company Number: US-ENDO PHARMACEUTICALS INC-2020-005867

PATIENT
  Age: 25 Year
  Sex: Female

DRUGS (1)
  1. PROPRANOLOL HYDROCHLORIDE. [Suspect]
     Active Substance: PROPRANOLOL HYDROCHLORIDE
     Indication: TACHYCARDIA
     Dosage: HALF A TABLET, DAILY
     Route: 065
     Dates: start: 202008, end: 202008

REACTIONS (5)
  - Palpitations [Unknown]
  - Dyspnoea [Unknown]
  - Heart rate increased [Unknown]
  - Product physical issue [Unknown]
  - Off label use [Recovered/Resolved]

NARRATIVE: CASE EVENT DATE: 202008
